FAERS Safety Report 25010842 (Version 1)
Quarter: 2025Q1

REPORT INFORMATION
  Report Type: Spontaneous
  Country: PR (occurrence: PR)
  Receive Date: 20250225
  Receipt Date: 20250225
  Transmission Date: 20250409
  Serious: Yes (Death)
  Sender: BIOMARIN
  Company Number: PR-BIOMARINAP-PR-2025-164205

PATIENT

DRUGS (1)
  1. VIMIZIM [Suspect]
     Active Substance: ELOSULFASE ALFA
     Indication: Mucopolysaccharidosis IV
     Dosage: 57 MILLIGRAM, QW
     Route: 042
     Dates: start: 2017

REACTIONS (1)
  - Death [Fatal]
